FAERS Safety Report 19485930 (Version 3)
Quarter: 2021Q3

REPORT INFORMATION
  Report Type: Spontaneous
  Country: US (occurrence: CA)
  Receive Date: 20210702
  Receipt Date: 20210915
  Transmission Date: 20211014
  Serious: Yes (Other)
  Sender: FDA-Public Use
  Company Number: US-ALK-ABELLO A/S-2021AA002625

PATIENT

DRUGS (3)
  1. STERILE DILUENT FOR ALLERGENIC EXTRACT NOS [Suspect]
     Active Substance: ALBUMIN HUMAN OR GLYCERIN OR PHENOL
     Indication: PRODUCT USED FOR UNKNOWN INDICATION
     Dosage: UNK
     Route: 058
     Dates: start: 20210504
  2. STERILE DILUENT FOR ALLERGENIC EXTRACT NOS [Suspect]
     Active Substance: ALBUMIN HUMAN OR GLYCERIN OR PHENOL
     Dosage: UNK
     Route: 058
  3. PAXIL [Concomitant]
     Active Substance: PAROXETINE HYDROCHLORIDE
     Indication: PRODUCT USED FOR UNKNOWN INDICATION
     Route: 048

REACTIONS (5)
  - Headache [Unknown]
  - Disorientation [Unknown]
  - Throat tightness [Unknown]
  - Flushing [Unknown]
  - Rash erythematous [Unknown]

NARRATIVE: CASE EVENT DATE: 20210504
